FAERS Safety Report 20827069 (Version 4)
Quarter: 2022Q3

REPORT INFORMATION
  Report Type: Report from Study
  Country: CO (occurrence: CO)
  Receive Date: 20220513
  Receipt Date: 20220720
  Transmission Date: 20221027
  Serious: Yes (Hospitalization, Other)
  Sender: FDA-Public Use
  Company Number: CO-NOVARTISPH-NVSC2020CO311282

PATIENT
  Age: 19 Year
  Sex: Male

DRUGS (1)
  1. ELTROMBOPAG OLAMINE [Suspect]
     Active Substance: ELTROMBOPAG OLAMINE
     Indication: Immune thrombocytopenia
     Dosage: 50 MG, QD
     Route: 048

REACTIONS (26)
  - Platelet count decreased [Unknown]
  - Syncope [Unknown]
  - Disease recurrence [Unknown]
  - Malaise [Unknown]
  - Asthenia [Unknown]
  - Viral infection [Not Recovered/Not Resolved]
  - Illness [Not Recovered/Not Resolved]
  - Pyrexia [Not Recovered/Not Resolved]
  - Pain [Not Recovered/Not Resolved]
  - Nasal congestion [Not Recovered/Not Resolved]
  - Dyspnoea [Not Recovered/Not Resolved]
  - Productive cough [Unknown]
  - Hypoaesthesia [Recovered/Resolved]
  - Nausea [Recovered/Resolved]
  - Headache [Not Recovered/Not Resolved]
  - Decreased appetite [Recovered/Resolved]
  - Food intolerance [Unknown]
  - Underweight [Unknown]
  - Weight increased [Unknown]
  - Muscle disorder [Unknown]
  - Weight decreased [Unknown]
  - Ear discomfort [Unknown]
  - Somnolence [Unknown]
  - Product supply issue [Unknown]
  - Fatigue [Unknown]
  - Dizziness [Unknown]

NARRATIVE: CASE EVENT DATE: 20220301
